FAERS Safety Report 20680100 (Version 1)
Quarter: 2022Q2

REPORT INFORMATION
  Report Type: Spontaneous
  Country: US (occurrence: None)
  Receive Date: 20220405
  Receipt Date: 20220405
  Transmission Date: 20220720
  Serious: Yes (Other)
  Sender: FDA-Public Use
  Company Number: None

PATIENT
  Age: 15 Year
  Sex: Female
  Weight: 45.9 kg

DRUGS (3)
  1. SCOPOLAMINE [Suspect]
     Active Substance: SCOPOLAMINE
     Indication: Dizziness
     Dosage: OTHER QUANTITY : 1 PATCH(ES);?OTHER FREQUENCY : EVERY 3 DAYS;?
     Route: 062
     Dates: start: 20220404, end: 20220405
  2. SCOPOLAMINE [Suspect]
     Active Substance: SCOPOLAMINE
     Indication: Dizziness
  3. SCOPOLAMINE [Suspect]
     Active Substance: SCOPOLAMINE
     Indication: Nausea

REACTIONS (4)
  - Vision blurred [None]
  - Mydriasis [None]
  - Dry mouth [None]
  - Oropharyngeal discomfort [None]

NARRATIVE: CASE EVENT DATE: 20220405
